FAERS Safety Report 8390435-7 (Version None)
Quarter: 2012Q2

REPORT INFORMATION
  Report Type: 
  Country: None (occurrence: None)
  Receive Date: 20120529
  Receipt Date: 20120516
  Transmission Date: 20120825
  Serious: Yes (Hospitalization)
  Sender: FDA-Public Use
  Company Number: US-JNJFOC-20120514464

PATIENT
  Sex: Female
  Weight: 65.32 kg

DRUGS (5)
  1. LIALDA [Concomitant]
     Indication: COLITIS
     Route: 048
     Dates: start: 20090101
  2. REMICADE [Suspect]
     Indication: COLITIS ULCERATIVE
     Route: 042
     Dates: start: 20120201, end: 20120201
  3. BENADRYL [Concomitant]
     Indication: PREMEDICATION
     Route: 065
  4. REMICADE [Suspect]
     Route: 042
     Dates: start: 20090101
  5. TYLENOL [Concomitant]
     Indication: PREMEDICATION
     Route: 065

REACTIONS (11)
  - BLOOD IRON DECREASED [None]
  - DRUG INEFFECTIVE [None]
  - INFUSION RELATED REACTION [None]
  - RASH [None]
  - VOMITING [None]
  - DIARRHOEA [None]
  - CLOSTRIDIAL INFECTION [None]
  - HYPERSENSITIVITY [None]
  - DEHYDRATION [None]
  - TREMOR [None]
  - CHILLS [None]
